FAERS Safety Report 7742679-2 (Version None)
Quarter: 2011Q3

REPORT INFORMATION
  Report Type: 
  Country: None (occurrence: None)
  Receive Date: 20110912
  Receipt Date: 20110905
  Transmission Date: 20111222
  Serious: Yes (Other)
  Sender: FDA-Public Use
  Company Number: JP-JNJFOC-20110810077

PATIENT
  Age: 20 Year
  Sex: Male

DRUGS (3)
  1. MARZULENE-S [Concomitant]
     Route: 065
  2. MEFENAMIC ACID [Concomitant]
     Route: 065
  3. LEVOFLOXACIN [Suspect]
     Indication: INFECTION PROPHYLAXIS
     Route: 065

REACTIONS (2)
  - GAZE PALSY [None]
  - PROTRUSION TONGUE [None]
